FAERS Safety Report 21927272 (Version 3)
Quarter: 2023Q4

REPORT INFORMATION
  Report Type: Spontaneous
  Country: US (occurrence: US)
  Receive Date: 20230130
  Receipt Date: 20231020
  Transmission Date: 20240110
  Serious: Yes (Hospitalization)
  Sender: FDA-Public Use
  Company Number: US-PFIZER INC-PV202300016761

PATIENT
  Age: 66 Year
  Sex: Male

DRUGS (2)
  1. BRAFTOVI [Suspect]
     Active Substance: ENCORAFENIB
     Dosage: 300 MG, DAILY (75 MG, 4 CAPSULES DAILY)
  2. MEKTOVI [Suspect]
     Active Substance: BINIMETINIB
     Dosage: 30 MG, 2X/DAY (TWO 15 MG TABLETS, TWICE DAILY)
     Route: 048

REACTIONS (1)
  - Bone scan abnormal [Unknown]

NARRATIVE: CASE EVENT DATE: 20230101
